FAERS Safety Report 20562618 (Version 2)
Quarter: 2022Q2

REPORT INFORMATION
  Report Type: Spontaneous
  Country: US (occurrence: US)
  Receive Date: 20220307
  Receipt Date: 20220615
  Transmission Date: 20220721
  Serious: Yes (Death, Other)
  Sender: FDA-Public Use
  Company Number: US-GILEAD-2022-0572236

PATIENT
  Age: 57 Year
  Sex: Male
  Weight: 135.15 kg

DRUGS (8)
  1. VEKLURY [Suspect]
     Active Substance: REMDESIVIR
     Indication: Product used for unknown indication
     Dosage: 200 MG, ONCE
     Route: 042
     Dates: start: 20210911, end: 20210911
  2. VEKLURY [Suspect]
     Active Substance: REMDESIVIR
     Dosage: 100 MG, QD
     Route: 042
     Dates: start: 20210912, end: 20210915
  3. BARICITINIB [Concomitant]
     Active Substance: BARICITINIB
     Dosage: 2 MG
     Route: 048
     Dates: start: 20210911, end: 20210919
  4. CEFTRIAXONE [Concomitant]
     Active Substance: CEFTRIAXONE
     Dosage: UNK
     Route: 042
     Dates: start: 20210910, end: 20210911
  5. ENOXAPARIN [Concomitant]
     Active Substance: ENOXAPARIN
     Dosage: 100 MG
     Route: 058
     Dates: start: 20210910, end: 20210918
  6. FENTANYL [Concomitant]
     Active Substance: FENTANYL
     Dosage: 2500 UNK
     Route: 042
     Dates: start: 20210915, end: 20210918
  7. DOCUSATE SODIUM [Concomitant]
     Active Substance: DOCUSATE SODIUM
     Dosage: UNK
     Route: 048
     Dates: start: 20210910, end: 20210919
  8. MIDAZOLAM [Concomitant]
     Active Substance: MIDAZOLAM
     Dosage: 5 MG
     Route: 042
     Dates: start: 20210913, end: 20210913

REACTIONS (2)
  - Death [Fatal]
  - Blood creatinine increased [Unknown]

NARRATIVE: CASE EVENT DATE: 20210919
